FAERS Safety Report 5225066-0 (Version None)
Quarter: 2007Q1

REPORT INFORMATION
  Report Type: 
  Country: None (occurrence: None)
  Receive Date: 20070126
  Receipt Date: 20070112
  Transmission Date: 20070707
  Serious: Yes (Death)
  Sender: FDA-Public Use
  Company Number: 2007S1000472

PATIENT
  Age: 35 Year
  Sex: Female
  Weight: 97.5234 kg

DRUGS (2)
  1. FENTANYL TRANSDERMAL SYSTEM [Suspect]
     Dosage: 100 UG/HR TRANSDERMAL
     Route: 062
     Dates: end: 20061122
  2. SERTRALINE [Concomitant]

REACTIONS (1)
  - POISONING [None]
